FAERS Safety Report 18478138 (Version 3)
Quarter: 2021Q4

REPORT INFORMATION
  Report Type: Report from Study
  Country: CN (occurrence: CN)
  Receive Date: 20201108
  Receipt Date: 20211204
  Transmission Date: 20220303
  Serious: Yes (Other)
  Sender: FDA-Public Use
  Company Number: CN-AUROBINDO-AUR-APL-2020-056134

PATIENT
  Age: 63 Year
  Sex: Male
  Weight: 70.1 kg

DRUGS (35)
  1. EVOMELA [Suspect]
     Active Substance: MELPHALAN HYDROCHLORIDE
     Indication: Plasma cell myeloma
     Dosage: 178 MILLIGRAM
     Route: 065
     Dates: start: 20201013, end: 20201014
  2. PALONOSETRON HYDROCHLORIDE [Concomitant]
     Active Substance: PALONOSETRON HYDROCHLORIDE
     Indication: Antiemetic supportive care
     Dosage: UNK
     Route: 040
     Dates: start: 20201013
  3. TROPISETRON HYDROCHLORIDE [Concomitant]
     Active Substance: TROPISETRON HYDROCHLORIDE
     Indication: Antiemetic supportive care
     Dosage: 5 MILLIGRAM
     Route: 040
     Dates: start: 20201016, end: 20201016
  4. TROPISETRON HYDROCHLORIDE [Concomitant]
     Active Substance: TROPISETRON HYDROCHLORIDE
     Dosage: 5 MILLIGRAM
     Route: 040
     Dates: start: 20201026
  5. NYSFUNGIN [Concomitant]
     Indication: Bowel preparation
     Dosage: 500000 UI, 3 TIMES A DAY
     Route: 048
     Dates: start: 20201011
  6. GENTAMICIN [Concomitant]
     Active Substance: GENTAMICIN
     Indication: Bowel preparation
     Dosage: 80 MILLIGRAM, 3 TIMES A DAY
     Route: 048
     Dates: start: 20201011
  7. OMEPRAZOLE [Concomitant]
     Active Substance: OMEPRAZOLE
     Indication: Gastrointestinal disorder
     Dosage: 40 MILLIGRAM
     Route: 065
     Dates: start: 20201022, end: 20201113
  8. OMEPRAZOLE [Concomitant]
     Active Substance: OMEPRAZOLE
     Dosage: UNK, UNK (50 ML 4 ML/H BY MICROINJECTION PUMP)
     Route: 065
     Dates: start: 20201026, end: 20201026
  9. OMEPRAZOLE [Concomitant]
     Active Substance: OMEPRAZOLE
     Dosage: UNK (50 ML 4 ML/H BY MICROINJECTION PUMP)
     Route: 065
     Dates: start: 20201027, end: 20201027
  10. OMEPRAZOLE [Concomitant]
     Active Substance: OMEPRAZOLE
     Dosage: 40 MILLIGRAM, TWO TIMES A DAY
     Route: 042
     Dates: start: 20201104, end: 20201113
  11. OMEPRAZOLE [Concomitant]
     Active Substance: OMEPRAZOLE
     Dosage: 40 MILLIGRAM, ONCE A DAY
     Route: 042
     Dates: start: 20201114
  12. SOMATOSTATIN [Concomitant]
     Active Substance: SOMATOSTATIN
     Indication: Gastrointestinal disorder
     Dosage: UNK
     Route: 065
     Dates: start: 20201026, end: 20201026
  13. SOMATOSTATIN [Concomitant]
     Active Substance: SOMATOSTATIN
     Dosage: UNK
     Route: 065
     Dates: start: 20201022
  14. POSACONAZOLE [Concomitant]
     Active Substance: POSACONAZOLE
     Indication: Fungal infection
     Dosage: 5 MILLILITER, 3 TIMES A DAY
     Route: 048
     Dates: start: 20201019
  15. PROMETHAZINE HYDROCHLORIDE [Concomitant]
     Active Substance: PROMETHAZINE HYDROCHLORIDE
     Indication: Chemotherapy side effect prophylaxis
     Dosage: 25 MILLIGRAM, TWO TIMES A DAY
     Route: 040
     Dates: start: 20201016
  16. DEXAMETHASONE SODIUM PHOSPHATE [Concomitant]
     Active Substance: DEXAMETHASONE SODIUM PHOSPHATE
     Indication: Chemotherapy side effect prophylaxis
     Dosage: 5 MILLIGRAM, TWO TIMES A DAY
     Route: 040
     Dates: start: 20201016
  17. DEXTROSE\SODIUM CHLORIDE [Concomitant]
     Active Substance: DEXTROSE\SODIUM CHLORIDE
     Indication: Dehydration
     Dosage: 500 MILLILITER, TWO TIMES A DAY
     Route: 042
     Dates: start: 20201011
  18. SODIUM BICARBONATE [Concomitant]
     Active Substance: SODIUM BICARBONATE
     Indication: Blood alkalinisation therapy
     Dosage: 125 MILLILITER, ONCE A DAY
     Route: 042
     Dates: start: 20201013
  19. SODIUM BICARBONATE [Concomitant]
     Active Substance: SODIUM BICARBONATE
     Dosage: UNK
  20. SODIUM CHLORIDE [Concomitant]
     Active Substance: SODIUM CHLORIDE
     Indication: Dehydration
     Dosage: 500 MILLILITER, TWO TIMES A DAY
     Route: 042
     Dates: start: 20201017, end: 20201019
  21. SODIUM CHLORIDE [Concomitant]
     Active Substance: SODIUM CHLORIDE
     Dosage: 500 MILLILITER, TWO TIMES A DAY
     Route: 042
     Dates: start: 20201019, end: 20201019
  22. SODIUM CHLORIDE [Concomitant]
     Active Substance: SODIUM CHLORIDE
     Dosage: 500 MILLILITER, TWO TIMES A DAY
     Route: 042
     Dates: start: 20201022, end: 20201022
  23. SODIUM CHLORIDE [Concomitant]
     Active Substance: SODIUM CHLORIDE
     Dosage: 50 MILLILITER, ONCE A DAY
     Route: 042
     Dates: start: 20201026, end: 20201026
  24. SODIUM CHLORIDE [Concomitant]
     Active Substance: SODIUM CHLORIDE
     Dosage: UNK, 50 ML 4 ML/H
     Route: 042
     Dates: start: 20201027, end: 20201027
  25. SODIUM CHLORIDE [Concomitant]
     Active Substance: SODIUM CHLORIDE
     Dosage: 500 MILLILITER, ONCE A DAY
     Route: 042
     Dates: start: 20201030, end: 20201031
  26. SODIUM CHLORIDE [Concomitant]
     Active Substance: SODIUM CHLORIDE
     Dosage: 500 MILLILITER, ONCE A DAY
     Route: 042
     Dates: start: 20201103, end: 20201103
  27. SODIUM CHLORIDE [Concomitant]
     Active Substance: SODIUM CHLORIDE
     Dosage: 500 MILLILITER, ONCE A DAY
     Route: 042
     Dates: start: 20201119, end: 20201119
  28. SODIUM CHLORIDE [Concomitant]
     Active Substance: SODIUM CHLORIDE
     Dosage: 500 MILLILITER, ONCE A DAY
     Route: 042
     Dates: start: 20201123
  29. SODIUM CHLORIDE [Concomitant]
     Active Substance: SODIUM CHLORIDE
     Indication: Dehydration
     Dosage: 500 MILLILITER, TWO TIMES A DAY
     Route: 042
     Dates: start: 20201011, end: 20201012
  30. SODIUM CHLORIDE [Concomitant]
     Active Substance: SODIUM CHLORIDE
     Dosage: 500 MILLILITER, TWO TIMES A DAY
     Route: 042
     Dates: start: 20201013, end: 20201022
  31. DEXTROSE [Concomitant]
     Active Substance: DEXTROSE
     Indication: Dehydration
     Dosage: 250 MILLILITER, ONCE A DAY
     Route: 042
     Dates: start: 20201026, end: 20201026
  32. DEXTROSE [Concomitant]
     Active Substance: DEXTROSE
     Dosage: 500 MILLILITER, ONCE A DAY
     Route: 042
     Dates: start: 20201026, end: 20201030
  33. DEXTROSE [Concomitant]
     Active Substance: DEXTROSE
     Dosage: 500 MILLILITER, ONCE A DAY
     Route: 042
     Dates: start: 20201027, end: 20201031
  34. DEXTROSE [Concomitant]
     Active Substance: DEXTROSE
     Dosage: 500 MILLILITER, ONCE A DAY
     Route: 042
     Dates: start: 20201102
  35. GRANULOCYTE COLONY-STIMULATING FACTOR NOS [Concomitant]
     Active Substance: GRANULOCYTE COLONY-STIMULATING FACTOR NOS
     Indication: White blood cell count increased
     Dosage: 350.5 MICROGRAM, ONCE A DAY
     Route: 042
     Dates: start: 20201021

REACTIONS (23)
  - Gastrointestinal haemorrhage [Recovered/Resolved]
  - Haematemesis [Recovered/Resolved]
  - Melaena [Recovered/Resolved with Sequelae]
  - Hypokalaemia [Recovered/Resolved]
  - Aspartate aminotransferase increased [Recovered/Resolved]
  - Alanine aminotransferase increased [Recovered/Resolved]
  - Blood urea increased [Recovered/Resolved]
  - Gamma-glutamyltransferase increased [Recovered/Resolved]
  - Constipation [Recovered/Resolved]
  - Blood bilirubin increased [Recovered/Resolved]
  - Hypocalcaemia [Recovered/Resolved]
  - Pyrexia [Recovered/Resolved]
  - Pneumonia [Recovered/Resolved]
  - Diarrhoea [Recovered/Resolved]
  - Hypertension [Recovered/Resolved]
  - Respiratory tract infection [Recovered/Resolved]
  - Mouth ulceration [Recovered/Resolved]
  - Vomiting [Recovered/Resolved]
  - Dizziness [Recovering/Resolving]
  - Temperature intolerance [Recovered/Resolved]
  - Chest discomfort [Recovering/Resolving]
  - Blood pressure increased [Recovered/Resolved]
  - Ear haemorrhage [Recovered/Resolved]

NARRATIVE: CASE EVENT DATE: 20201014
